FAERS Safety Report 11723114 (Version 1)
Quarter: 2015Q4

REPORT INFORMATION
  Report Type: Spontaneous
  Country: US (occurrence: None)
  Receive Date: 20151110
  Receipt Date: 20151110
  Transmission Date: 20160304
  Serious: Yes (Life-Threatening, Hospitalization)
  Sender: FDA-Public Use
  Company Number: None

PATIENT
  Age: 92 Year
  Sex: Female
  Weight: 57.61 kg

DRUGS (3)
  1. AMLODIPINE [Concomitant]
     Active Substance: AMLODIPINE BESYLATE
  2. CEPHALEXIN 500MG [Suspect]
     Active Substance: CEPHALEXIN
     Indication: URINARY TRACT INFECTION
     Dosage: 500 MG 2 PILLS TWICE A DAY TAKEN BY MOUTH
     Route: 048
     Dates: start: 20151028, end: 20151028
  3. L-THYROXINE [Concomitant]
     Active Substance: LEVOTHYROXINE

REACTIONS (6)
  - Urticaria [None]
  - Erythema [None]
  - Pain [None]
  - Seizure [None]
  - Blood pressure decreased [None]
  - Hypersensitivity [None]

NARRATIVE: CASE EVENT DATE: 20151028
